FAERS Safety Report 6740556-7 (Version None)
Quarter: 2010Q2

REPORT INFORMATION
  Report Type: 
  Country: None (occurrence: None)
  Receive Date: 20100525
  Receipt Date: 20100512
  Transmission Date: 20101027
  Serious: Yes (Other)
  Sender: FDA-Public Use
  Company Number: PHHY2010US30923

PATIENT

DRUGS (3)
  1. DIOVAN [Suspect]
     Dosage: UNK
  2. METOPROLOL [Concomitant]
  3. ALTACE [Concomitant]

REACTIONS (2)
  - BLOOD PRESSURE INCREASED [None]
  - MYOCARDIAL INFARCTION [None]
